FAERS Safety Report 8386915-0 (Version None)
Quarter: 2012Q2

REPORT INFORMATION
  Report Type: 
  Country: None (occurrence: None)
  Receive Date: 20120525
  Receipt Date: 20120515
  Transmission Date: 20120825
  Serious: Yes (Hospitalization)
  Sender: FDA-Public Use
  Company Number: US-JNJFOC-20120514221

PATIENT
  Age: 18 Year
  Sex: Female
  Weight: 52 kg

DRUGS (5)
  1. CEFTRIAXONE [Concomitant]
     Indication: ANTIBIOTIC THERAPY
  2. MERCAPTOPURINE [Concomitant]
  3. INFLIXIMAB, RECOMBINANT [Suspect]
     Route: 042
     Dates: start: 20091012
  4. METRONIDAZOLE [Concomitant]
  5. INFLIXIMAB, RECOMBINANT [Suspect]
     Indication: CROHN'S DISEASE
     Route: 042
     Dates: start: 20040119

REACTIONS (2)
  - INTESTINAL PERFORATION [None]
  - FISTULA [None]
